APPROVED DRUG PRODUCT: DEXTROSE 5%, SODIUM CHLORIDE 0.2% AND POTASSIUM CHLORIDE 40MEQ
Active Ingredient: DEXTROSE; POTASSIUM CHLORIDE; SODIUM CHLORIDE
Strength: 5GM/100ML;300MG/100ML;200MG/100ML
Dosage Form/Route: INJECTABLE;INJECTION
Application: N018037 | Product #009 | TE Code: AP
Applicant: BAXTER HEALTHCARE CORP
Approved: Apr 13, 1982 | RLD: No | RS: No | Type: RX